FAERS Safety Report 11969462 (Version 2)
Quarter: 2016Q1

REPORT INFORMATION
  Report Type: Spontaneous
  Country: JP (occurrence: JP)
  Receive Date: 20160128
  Receipt Date: 20160223
  Transmission Date: 20160526
  Serious: Yes (Hospitalization)
  Sender: FDA-Public Use
  Company Number: JP-ASTRAZENECA-2016SE07617

PATIENT
  Age: 48 Year
  Sex: Female
  Weight: 47 kg

DRUGS (3)
  1. CYTARABINE. [Concomitant]
     Active Substance: CYTARABINE
     Dosage: DOSE UNKNOWN
     Route: 065
  2. DAUNORUBICIN HYDROCHLORIDE. [Concomitant]
     Active Substance: DAUNORUBICIN HYDROCHLORIDE
     Dosage: DOSE UNKNOWN
     Route: 065
     Dates: start: 200903
  3. CRESTOR [Suspect]
     Active Substance: ROSUVASTATIN CALCIUM
     Indication: DYSLIPIDAEMIA
     Route: 048
     Dates: start: 20141024, end: 20141224

REACTIONS (1)
  - Hepatitis B [Recovered/Resolved]

NARRATIVE: CASE EVENT DATE: 20141219
